FAERS Safety Report 10029297 (Version 4)
Quarter: 2015Q2

REPORT INFORMATION
  Report Type: Spontaneous
  Country: US (occurrence: US)
  Receive Date: 20140321
  Receipt Date: 20150616
  Transmission Date: 20150821
  Serious: Yes (Hospitalization, Other)
  Sender: FDA-Public Use
  Company Number: US-SANOFI-AVENTIS-2012SA003150

PATIENT
  Age: 60 Year
  Sex: Male
  Weight: 81.64 kg

DRUGS (14)
  1. TRICOR [Concomitant]
     Active Substance: FENOFIBRATE
     Dates: start: 20080909
  2. WELLBUTRIN [Concomitant]
     Active Substance: BUPROPION HYDROCHLORIDE
     Dates: start: 20080909
  3. TRAZODONE [Concomitant]
     Active Substance: TRAZODONE HYDROCHLORIDE
     Dates: start: 20080909
  4. DIGOXIN. [Concomitant]
     Active Substance: DIGOXIN
     Dates: start: 20080909
  5. PROTONIX [Concomitant]
     Active Substance: PANTOPRAZOLE SODIUM
     Route: 042
  6. COZAAR [Concomitant]
     Active Substance: LOSARTAN POTASSIUM
     Dates: start: 20080909
  7. LORAZEPAM. [Concomitant]
     Active Substance: LORAZEPAM
     Indication: ANXIETY
     Route: 042
  8. PLAVIX [Suspect]
     Active Substance: CLOPIDOGREL BISULFATE
     Route: 048
     Dates: start: 20030618, end: 20080910
  9. LIPITOR [Concomitant]
     Active Substance: ATORVASTATIN CALCIUM
     Dates: start: 20080909
  10. VERAPAMIL [Concomitant]
     Active Substance: VERAPAMIL HYDROCHLORIDE
     Dates: start: 20080909
  11. FINASTERIDE. [Concomitant]
     Active Substance: FINASTERIDE
     Dates: start: 20080909
  12. ASPIRIN. [Concomitant]
     Active Substance: ASPIRIN
     Dates: start: 20080910
  13. CELEBREX [Concomitant]
     Active Substance: CELECOXIB
     Dates: start: 20080909
  14. ZOLPIDEM [Concomitant]
     Active Substance: ZOLPIDEM\ZOLPIDEM TARTRATE
     Route: 048

REACTIONS (4)
  - Rectal haemorrhage [Unknown]
  - Gastrointestinal haemorrhage [Unknown]
  - Injury [Unknown]
  - Haematochezia [Unknown]

NARRATIVE: CASE EVENT DATE: 20080910
